FAERS Safety Report 10184642 (Version 2)
Quarter: 2014Q4

REPORT INFORMATION
  Report Type: Spontaneous
  Country: US (occurrence: None)
  Receive Date: 20140519
  Receipt Date: 20141002
  Transmission Date: 20150528
  Serious: Yes (Other)
  Sender: FDA-Public Use
  Company Number: 2014-19537

PATIENT
  Age: 84 Year
  Sex: Male
  Weight: 104.3 kg

DRUGS (10)
  1. LUTEIN [Concomitant]
     Active Substance: LUTEIN
  2. EYLEA [Suspect]
     Active Substance: AFLIBERCEPT
     Indication: AGE-RELATED MACULAR DEGENERATION
     Route: 031
  3. HYDRALAZINE [Concomitant]
     Active Substance: HYDRALAZINE HYDROCHLORIDE
  4. WARFARIN [Concomitant]
     Active Substance: WARFARIN
  5. HYDROCHLOROTHIAZIDE. [Concomitant]
     Active Substance: HYDROCHLOROTHIAZIDE
  6. LABETALOL [Concomitant]
     Active Substance: LABETALOL\LABETALOL HYDROCHLORIDE
  7. LOSARTAN [Concomitant]
     Active Substance: LOSARTAN
  8. LASIX [Concomitant]
     Active Substance: FUROSEMIDE
  9. OMEGA 3 [Concomitant]
     Active Substance: OMEGA-3 FATTY ACIDS
  10. TAMSULOSIN [Concomitant]
     Active Substance: TAMSULOSIN

REACTIONS (2)
  - Visual acuity reduced [None]
  - Cataract operation [None]

NARRATIVE: CASE EVENT DATE: 20140204
